FAERS Safety Report 8452430-9 (Version None)
Quarter: 2012Q2

REPORT INFORMATION
  Report Type: 
  Country: None (occurrence: None)
  Receive Date: 20120620
  Receipt Date: 20120516
  Transmission Date: 20120825
  Serious: No
  Sender: FDA-Public Use
  Company Number: US-VERTEX PHARMACEUTICALS INC.-AE-2012-005190

PATIENT
  Age: 60 Year
  Sex: Male

DRUGS (4)
  1. SYNTHROID [Concomitant]
  2. INCIVEK [Suspect]
     Indication: HEPATITIS C
     Route: 048
     Dates: start: 20120330
  3. PEGASYS [Concomitant]
     Indication: HEPATITIS C
     Dates: start: 20120330
  4. COPEGUS [Concomitant]
     Indication: HEPATITIS C
     Dates: start: 20120330

REACTIONS (10)
  - ANXIETY [None]
  - BLOOD PRESSURE INCREASED [None]
  - PRURITUS [None]
  - ABDOMINAL DISTENSION [None]
  - FEELING HOT [None]
  - RASH [None]
  - DYSPNOEA [None]
  - CONSTIPATION [None]
  - HAEMOGLOBIN DECREASED [None]
  - DIZZINESS [None]
